FAERS Safety Report 24154011 (Version 2)
Quarter: 2024Q3

REPORT INFORMATION
  Report Type: Spontaneous
  Country: ID (occurrence: ID)
  Receive Date: 20240730
  Receipt Date: 20240814
  Transmission Date: 20241017
  Serious: Yes (Hospitalization)
  Sender: MYLAN
  Company Number: ID-MYLANLABS-2024M1069406

PATIENT
  Age: 61 Year
  Sex: Female
  Weight: 63 kg

DRUGS (2)
  1. AMLODIPINE [Suspect]
     Active Substance: AMLODIPINE BESYLATE
     Indication: Hypertension
     Dosage: 10 MILLIGRAM, QD (1X10MG)
     Route: 065
  2. CAPTOPRIL [Suspect]
     Active Substance: CAPTOPRIL
     Indication: Hypertension
     Dosage: 25 MILLIGRAM, TID (3X25MG)
     Route: 048

REACTIONS (11)
  - Loss of consciousness [Unknown]
  - Seizure [Unknown]
  - Speech disorder [Unknown]
  - Abdominal discomfort [Unknown]
  - Increased appetite [Unknown]
  - Asthenia [Unknown]
  - Nausea [Unknown]
  - Dizziness [Unknown]
  - Tension headache [Unknown]
  - Hypertension [Unknown]
  - Decreased appetite [Unknown]
